FAERS Safety Report 11681141 (Version 2)
Quarter: 2015Q4

REPORT INFORMATION
  Report Type: Report from Study
  Country: CA (occurrence: CA)
  Receive Date: 20151029
  Receipt Date: 20151125
  Transmission Date: 20160304
  Serious: Yes (Other)
  Sender: FDA-Public Use
  Company Number: CA-AMGEN-CANSL2015109864

PATIENT
  Age: 63 Year
  Sex: Female
  Weight: 599 kg

DRUGS (6)
  1. PROLIA [Suspect]
     Active Substance: DENOSUMAB
     Indication: OSTEOPOROSIS POSTMENOPAUSAL
     Dosage: 60 MG, Q6MO
     Route: 058
     Dates: start: 201401, end: 201508
  2. CALCIUM CITRATE [Concomitant]
     Active Substance: CALCIUM CITRATE
     Dosage: 300 MG, BID
  3. LIPITOR [Concomitant]
     Active Substance: ATORVASTATIN CALCIUM
     Route: 065
  4. VITAMIN D                          /00107901/ [Concomitant]
     Active Substance: ERGOCALCIFEROL
     Dosage: 1000 UNIT, QD
  5. VITAMINS                           /00067501/ [Concomitant]
     Active Substance: VITAMINS
     Route: 065
  6. WARFARIN [Concomitant]
     Active Substance: WARFARIN
     Indication: CARDIAC VALVE DISEASE
     Route: 065

REACTIONS (8)
  - Osteopenia [Unknown]
  - Arthropathy [Unknown]
  - Thoracic vertebral fracture [Unknown]
  - Atypical femur fracture [Not Recovered/Not Resolved]
  - Lung hyperinflation [Unknown]
  - Bone disorder [Unknown]
  - Emphysema [Unknown]
  - Fall [Unknown]

NARRATIVE: CASE EVENT DATE: 201411
